FAERS Safety Report 5279506-1 (Version None)
Quarter: 2007Q1

REPORT INFORMATION
  Report Type: 
  Country: None (occurrence: None)
  Receive Date: 20070328
  Receipt Date: 20070320
  Transmission Date: 20070707
  Serious: Yes (Death, Other)
  Sender: FDA-Public Use
  Company Number: US-PFIZER INC-2006119384

PATIENT
  Sex: Female
  Weight: 86.2 kg

DRUGS (2)
  1. BEXTRA [Suspect]
     Indication: BACK PAIN
     Dosage: TEXT:10-20MG
     Route: 048
     Dates: start: 20040601, end: 20040927
  2. BEXTRA [Suspect]
     Indication: PAIN IN EXTREMITY

REACTIONS (1)
  - MYOCARDIAL INFARCTION [None]
